FAERS Safety Report 7770500-5 (Version None)
Quarter: 2011Q3

REPORT INFORMATION
  Report Type: 
  Country: None (occurrence: None)
  Receive Date: 20110922
  Receipt Date: 20100909
  Transmission Date: 20111222
  Serious: Yes (Hospitalization)
  Sender: FDA-Public Use
  Company Number: US-ASTRAZENECA-2010SE42478

PATIENT
  Age: 44 Year
  Sex: Female

DRUGS (4)
  1. LYMICTAL [Concomitant]
  2. ZOLOFT [Concomitant]
  3. KLONOPIN [Concomitant]
  4. SEROQUEL [Suspect]
     Dosage: OVERDOSE OF SEROQUEL 200 MG- 20 TABLETS
     Route: 048

REACTIONS (1)
  - OVERDOSE [None]
